FAERS Safety Report 20432767 (Version 1)
Quarter: 2022Q1

REPORT INFORMATION
  Report Type: Spontaneous
  Country: US (occurrence: US)
  Receive Date: 20220205
  Receipt Date: 20220205
  Transmission Date: 20220423
  Serious: No
  Sender: FDA-Public Use
  Company Number: US-AUROBINDO-AUR-APL-2022-000819

PATIENT
  Age: 69 Year
  Sex: Female
  Weight: 47.6 kg

DRUGS (4)
  1. ELETRIPTAN HYDROBROMIDE [Suspect]
     Active Substance: ELETRIPTAN HYDROBROMIDE
     Indication: Migraine
     Dosage: 1 DOSAGE FORM (ON ONSET OF MIGRAINE, MAY REPEAT IN 02 HOURS)
     Route: 048
  2. ATENOLOL [Concomitant]
     Active Substance: ATENOLOL
     Indication: Cardiac failure
     Dosage: UNK
     Route: 065
  3. LEVOTHYROXINE [Concomitant]
     Active Substance: LEVOTHYROXINE
     Indication: Migraine
     Dosage: UNK, EVERY MONTH
     Route: 065
  4. PROLIA [Concomitant]
     Active Substance: DENOSUMAB
     Indication: Osteoporosis
     Dosage: UNK, EVERY 06 MONTHS
     Route: 065

REACTIONS (4)
  - Product taste abnormal [Unknown]
  - Product odour abnormal [Unknown]
  - Product coating issue [Unknown]
  - Product substitution issue [Unknown]

NARRATIVE: CASE EVENT DATE: 20220104
